FAERS Safety Report 9705609 (Version 1)
Quarter: 2013Q4

REPORT INFORMATION
  Report Type: Spontaneous
  Country: US (occurrence: US)
  Receive Date: 20131122
  Receipt Date: 20131122
  Transmission Date: 20140711
  Serious: No
  Sender: FDA-Public Use
  Company Number: US-GILEAD-2008-0017164

PATIENT
  Sex: 0

DRUGS (1)
  1. LETAIRIS [Suspect]

REACTIONS (2)
  - Vomiting [None]
  - Dyspnoea [None]
